FAERS Safety Report 21004019 (Version 1)
Quarter: 2022Q2

REPORT INFORMATION
  Report Type: Spontaneous
  Country: US (occurrence: US)
  Receive Date: 20220624
  Receipt Date: 20220624
  Transmission Date: 20220721
  Serious: Yes (Hospitalization, Other)
  Sender: FDA-Public Use
  Company Number: US-BRISTOL-MYERS SQUIBB COMPANY-2022-058289

PATIENT
  Age: 84 Year
  Sex: Male

DRUGS (1)
  1. REVLIMID [Suspect]
     Active Substance: LENALIDOMIDE
     Indication: Follicular lymphoma
     Dosage: DOSE :UNAVAILABLE;     FREQ : 1 CAPSULE BY MOUTH DAILY 21 DAYS,7 DAYS OFF
     Route: 048
     Dates: start: 20220517

REACTIONS (1)
  - Myocardial infarction [Unknown]
